FAERS Safety Report 7338577-9 (Version None)
Quarter: 2011Q1

REPORT INFORMATION
  Report Type: 
  Country: None (occurrence: None)
  Receive Date: 20110308
  Receipt Date: 20110223
  Transmission Date: 20110831
  Serious: Yes (Hospitalization)
  Sender: FDA-Public Use
  Company Number: FR-ELI_LILLY_AND_COMPANY-FR201103001454

PATIENT
  Sex: Male

DRUGS (7)
  1. NEXIUM [Concomitant]
  2. HALDOL [Concomitant]
  3. CYMBALTA [Suspect]
     Route: 048
  4. INDAPAMIDE [Concomitant]
  5. NOCTAMIDE [Concomitant]
  6. ACETAMINOPHEN AND TRAMADOL HCL [Concomitant]
  7. LIPANTHYL [Concomitant]

REACTIONS (4)
  - DELUSION [None]
  - SLEEP PHASE RHYTHM DISTURBANCE [None]
  - HALLUCINATION, AUDITORY [None]
  - AGGRESSION [None]
